FAERS Safety Report 17187545 (Version 3)
Quarter: 2020Q1

REPORT INFORMATION
  Report Type: Spontaneous
  Country: ES (occurrence: ES)
  Receive Date: 20191220
  Receipt Date: 20200120
  Transmission Date: 20200409
  Serious: Yes (Other)
  Sender: FDA-Public Use
  Company Number: ES-ROCHE-2502727

PATIENT
  Age: 45 Year
  Sex: Male

DRUGS (4)
  1. MUPIROCINE [Concomitant]
     Active Substance: MUPIROCIN
  2. MABTHERA [Suspect]
     Active Substance: RITUXIMAB
     Indication: MULTIPLE SCLEROSIS RELAPSE
     Route: 042
     Dates: start: 20180703
  3. CICLOPIROX. [Concomitant]
     Active Substance: CICLOPIROX
  4. MOMETASONE [Concomitant]
     Active Substance: MOMETASONE

REACTIONS (3)
  - Intentional product use issue [Unknown]
  - Off label use [Unknown]
  - Panniculitis [Not Recovered/Not Resolved]

NARRATIVE: CASE EVENT DATE: 20190123
